FAERS Safety Report 5137404-8 (Version None)
Quarter: 2006Q4

REPORT INFORMATION
  Report Type: 
  Country: None (occurrence: None)
  Receive Date: 20061030
  Receipt Date: 20051027
  Transmission Date: 20070319
  Serious: No
  Sender: FDA-Public Use
  Company Number: US-GLAXOSMITHKLINE-A0579916A

PATIENT
  Age: 56 Year
  Sex: Female

DRUGS (13)
  1. ADVAIR HFA [Suspect]
     Indication: BRONCHOSPASM
     Dosage: 1PUFF TWICE PER DAY
     Route: 055
  2. BUSPAR [Concomitant]
  3. TOPROL-XL [Concomitant]
  4. ISOSORBIDE [Concomitant]
  5. GLUCOPHAGE [Concomitant]
  6. LISINOPRIL [Concomitant]
  7. LASIX [Concomitant]
  8. ARIMIDEX [Concomitant]
  9. ZOLOFT [Concomitant]
  10. SOMA [Concomitant]
  11. LORTAB [Concomitant]
  12. XANAX [Concomitant]
  13. ALBUTEROL [Concomitant]

REACTIONS (2)
  - ANXIETY [None]
  - BLOOD PRESSURE INCREASED [None]
